FAERS Safety Report 9693960 (Version 1)
Quarter: 2013Q4

REPORT INFORMATION
  Report Type: Spontaneous
  Country: JP (occurrence: None)
  Receive Date: 20131114
  Receipt Date: 20131114
  Transmission Date: 20140711
  Serious: Yes (Other)
  Sender: FDA-Public Use
  Company Number: VAL_02810_2013

PATIENT
  Age: 80 Year
  Sex: 0

DRUGS (4)
  1. PARLODEL [Suspect]
     Indication: ANTIDEPRESSANT THERAPY
     Dosage: (22.5 MG, 2.5 MG (NOT SPECIFIED)
     Route: 048
     Dates: end: 201310
  2. PARLODEL [Suspect]
     Indication: OFF LABEL USE
     Dosage: (22.5 MG, 2.5 MG (NOT SPECIFIED)
     Route: 048
     Dates: end: 201310
  3. SYMMETREL [Suspect]
     Indication: ANTIDEPRESSANT THERAPY
     Dosage: (300 MG, DAILY ORAL )
     Route: 048
     Dates: end: 201310
  4. SYMMETREL [Suspect]
     Indication: OFF LABEL USE
     Dosage: (300 MG, DAILY ORAL )
     Route: 048
     Dates: end: 201310

REACTIONS (3)
  - Off label use [None]
  - Pneumonia aspiration [None]
  - Therapy cessation [None]
